APPROVED DRUG PRODUCT: BELRAPZO
Active Ingredient: BENDAMUSTINE HYDROCHLORIDE
Strength: 100MG/4ML (25MG/ML)
Dosage Form/Route: SOLUTION;INTRAVENOUS
Application: N205580 | Product #001 | TE Code: AP
Applicant: EAGLE PHARMACEUTICALS INC
Approved: May 15, 2018 | RLD: Yes | RS: Yes | Type: RX

PATENTS:
Patent 9572796 | Expires: Jan 28, 2031
Patent 9572796 | Expires: Jan 28, 2031
Patent 8609707 | Expires: Aug 11, 2031
Patent 9572797 | Expires: Jan 28, 2031
Patent 9572797 | Expires: Jan 28, 2031
Patent 11103483 | Expires: Jan 28, 2031
Patent 11103483 | Expires: Jan 28, 2031
Patent 12350257 | Expires: Jan 28, 2031
Patent 12350257 | Expires: Jan 28, 2031
Patent 12350257 | Expires: Jan 28, 2031
Patent 11844783 | Expires: Jan 28, 2031
Patent 11844783 | Expires: Jan 28, 2031
Patent 11844783 | Expires: Jan 28, 2031
Patent 8609707 | Expires: Aug 11, 2031
Patent 8791270 | Expires: Jan 12, 2026
Patent 8791270 | Expires: Jan 12, 2026
Patent 10010533 | Expires: Jan 28, 2031
Patent 11872214 | Expires: Jan 28, 2031
Patent 12138248 | Expires: Jan 28, 2031
Patent 9265831 | Expires: Jan 28, 2031